FAERS Safety Report 15618568 (Version 2)
Quarter: 2018Q4

REPORT INFORMATION
  Report Type: Spontaneous
  Country: JP (occurrence: JP)
  Receive Date: 20181114
  Receipt Date: 20181122
  Transmission Date: 20190205
  Serious: Yes (Hospitalization, Other)
  Sender: FDA-Public Use
  Company Number: JP-BAUSCH-BL-2018-031333

PATIENT
  Age: 83 Year
  Sex: Male

DRUGS (4)
  1. VISUDYNE [Suspect]
     Active Substance: VERTEPORFIN
     Route: 042
     Dates: start: 201805, end: 201805
  2. AFLIBERCEPT [Concomitant]
     Active Substance: AFLIBERCEPT
     Indication: PRODUCT USED FOR UNKNOWN INDICATION
     Route: 065
  3. VISUDYNE [Suspect]
     Active Substance: VERTEPORFIN
     Indication: NEOVASCULAR AGE-RELATED MACULAR DEGENERATION
     Route: 042
     Dates: start: 2013
  4. LUCENTIS [Suspect]
     Active Substance: RANIBIZUMAB
     Indication: POLYPOIDAL CHOROIDAL VASCULOPATHY
     Route: 031

REACTIONS (3)
  - Polypoidal choroidal vasculopathy [Unknown]
  - Disease progression [Unknown]
  - Cerebral infarction [Recovered/Resolved]

NARRATIVE: CASE EVENT DATE: 201803
